FAERS Safety Report 5253259-5 (Version None)
Quarter: 2007Q1

REPORT INFORMATION
  Report Type: 
  Country: None (occurrence: None)
  Receive Date: 20070301
  Receipt Date: 20070220
  Transmission Date: 20070707
  Serious: Yes (Death, Disabling)
  Sender: FDA-Public Use
  Company Number: US-JNJFOC-20060905604

PATIENT
  Sex: Male
  Weight: 63.5 kg

DRUGS (6)
  1. LEVAQUIN [Suspect]
     Indication: PROSTATIC OPERATION
     Route: 048
  2. LOTREL [Concomitant]
  3. COREG [Concomitant]
  4. SODIUM BICARBONATE [Concomitant]
  5. LASIX [Concomitant]
  6. FERROUS SULFATE [Concomitant]

REACTIONS (2)
  - TENDON RUPTURE [None]
  - VENTRICULAR FIBRILLATION [None]
